FAERS Safety Report 4777034-0 (Version None)
Quarter: 2005Q3

REPORT INFORMATION
  Report Type: 
  Country: None (occurrence: None)
  Receive Date: 20050923
  Receipt Date: 20050916
  Transmission Date: 20060218
  Serious: Yes (Hospitalization)
  Sender: FDA-Public Use
  Company Number: US-BRISTOL-MYERS SQUIBB COMPANY-13114129

PATIENT
  Age: 58 Year
  Sex: Female
  Weight: 58 kg

DRUGS (6)
  1. CETUXIMAB [Suspect]
     Indication: NON-SMALL CELL LUNG CANCER
     Route: 042
     Dates: start: 20050913, end: 20050913
  2. CARBOPLATIN [Suspect]
     Indication: NON-SMALL CELL LUNG CANCER
     Route: 042
     Dates: start: 20050823
  3. PACLITAXEL [Suspect]
     Indication: NON-SMALL CELL LUNG CANCER
     Route: 042
     Dates: start: 20050823
  4. ARANESP [Concomitant]
     Dates: start: 20050823, end: 20050913
  5. MOTRIN [Concomitant]
     Indication: SHOULDER PAIN
     Dates: start: 20050825
  6. TESSALON [Concomitant]
     Dosage: BID PRN.
     Dates: start: 20050830

REACTIONS (1)
  - PALPITATIONS [None]
